FAERS Safety Report 10166884 (Version 4)
Quarter: 2015Q1

REPORT INFORMATION
  Report Type: Spontaneous
  Country: US (occurrence: US)
  Receive Date: 20140512
  Receipt Date: 20150217
  Transmission Date: 20150720
  Serious: Yes (Hospitalization, Other)
  Sender: FDA-Public Use
  Company Number: US-PFIZER INC-2014125641

PATIENT
  Age: 67 Year
  Sex: Male

DRUGS (1)
  1. VFEND [Suspect]
     Active Substance: VORICONAZOLE
     Indication: LUNG DISORDER
     Dosage: 200 MG, 2X/DAY
     Dates: end: 201404

REACTIONS (5)
  - Deafness [Unknown]
  - Lung disorder [Unknown]
  - Respiratory disorder [Not Recovered/Not Resolved]
  - Ear disorder [Unknown]
  - Dyspnoea [Unknown]
